FAERS Safety Report 13020711 (Version 1)
Quarter: 2016Q4

REPORT INFORMATION
  Report Type: Report from Study
  Country: US (occurrence: US)
  Receive Date: 20161212
  Receipt Date: 20161212
  Transmission Date: 20170207
  Serious: Yes (Other)
  Sender: FDA-Public Use
  Company Number: US-EMD SERONO-E2B_80054914

PATIENT
  Sex: Female

DRUGS (1)
  1. REBIF [Suspect]
     Active Substance: INTERFERON BETA-1A
     Indication: PRODUCT USED FOR UNKNOWN INDICATION
     Route: 058
     Dates: start: 20020614

REACTIONS (8)
  - Pollakiuria [Not Recovered/Not Resolved]
  - Micturition urgency [Not Recovered/Not Resolved]
  - Injection site erythema [Not Recovered/Not Resolved]
  - Thyroid function test abnormal [Unknown]
  - Basedow^s disease [Unknown]
  - Sciatica [Recovering/Resolving]
  - Urinary tract infection [Unknown]
  - Urinary incontinence [Not Recovered/Not Resolved]

NARRATIVE: CASE EVENT DATE: 2016
